FAERS Safety Report 16619012 (Version 1)
Quarter: 2019Q3

REPORT INFORMATION
  Report Type: Report from Study
  Country: BR (occurrence: BR)
  Receive Date: 20190723
  Receipt Date: 20190723
  Transmission Date: 20191004
  Serious: Yes (Disabling)
  Sender: FDA-Public Use
  Company Number: PHHY2019BR168135

PATIENT
  Sex: Female

DRUGS (1)
  1. COSENTYX [Suspect]
     Active Substance: SECUKINUMAB
     Indication: PRODUCT USED FOR UNKNOWN INDICATION
     Dosage: UNK
     Route: 065
     Dates: start: 20190610

REACTIONS (6)
  - Mobility decreased [Unknown]
  - Back pain [Unknown]
  - Pain [Unknown]
  - Malaise [Unknown]
  - Arthralgia [Unknown]
  - Musculoskeletal stiffness [Unknown]
